FAERS Safety Report 4469063-1 (Version None)
Quarter: 2004Q4

REPORT INFORMATION
  Report Type: 
  Country: None (occurrence: None)
  Receive Date: 20041001
  Receipt Date: 20040917
  Transmission Date: 20050328
  Serious: Yes (Other)
  Sender: FDA-Public Use
  Company Number: 220003M04DEU

PATIENT
  Age: 15 Year
  Sex: Female
  Weight: 53 kg

DRUGS (2)
  1. SAIZEN [Suspect]
     Indication: TURNER'S SYNDROME
     Dosage: 0.9 MG, 1 IN 1 DAYS
     Dates: start: 20030721, end: 20030821
  2. ESTRADIOL VALERATE [Concomitant]

REACTIONS (2)
  - PITUITARY ENLARGEMENT [None]
  - PITUITARY TUMOUR BENIGN [None]
